FAERS Safety Report 18266583 (Version 3)
Quarter: 2020Q3

REPORT INFORMATION
  Report Type: Spontaneous
  Country: CN (occurrence: CN)
  Receive Date: 20200915
  Receipt Date: 20200921
  Transmission Date: 20201103
  Serious: Yes (Other)
  Sender: FDA-Public Use
  Company Number: CN-PFIZER INC-2020350893

PATIENT
  Age: 20 Year
  Sex: Male
  Weight: 54.5 kg

DRUGS (1)
  1. METHOTREXATE. [Suspect]
     Active Substance: METHOTREXATE
     Indication: NON-HODGKIN^S LYMPHOMA
     Dosage: UNK (3 G/M^2, HIGH DOSE),FOR 24H WITH VIGOROUS IV HYDRATION AND URINE ALKALINIZATION
     Route: 041

REACTIONS (3)
  - Acute kidney injury [Recovered/Resolved]
  - Nephropathy toxic [Recovered/Resolved]
  - Drug level increased [Recovered/Resolved]
